FAERS Safety Report 25304461 (Version 2)
Quarter: 2025Q2

REPORT INFORMATION
  Report Type: Spontaneous
  Country: US (occurrence: US)
  Receive Date: 20250513
  Receipt Date: 20250518
  Transmission Date: 20250716
  Serious: No
  Sender: ELI LILLY AND COMPANY
  Company Number: US-ELI_LILLY_AND_COMPANY-US202505008219

PATIENT
  Age: 47 Year
  Sex: Female

DRUGS (1)
  1. ZEPBOUND [Suspect]
     Active Substance: TIRZEPATIDE
     Indication: Weight control
     Route: 058
     Dates: start: 20250505

REACTIONS (4)
  - Cold sweat [Recovered/Resolved]
  - Urticaria [Recovered/Resolved]
  - Illness [Unknown]
  - Nausea [Unknown]

NARRATIVE: CASE EVENT DATE: 20250505
